FAERS Safety Report 14684509 (Version 1)
Quarter: 2018Q1

REPORT INFORMATION
  Report Type: Report from Study
  Country: CA (occurrence: CA)
  Receive Date: 20180327
  Receipt Date: 20180327
  Transmission Date: 20180509
  Serious: Yes (Hospitalization)
  Sender: FDA-Public Use
  Company Number: CA-HLSUS-2018-CA-000238

PATIENT
  Age: 66 Year
  Sex: Male

DRUGS (1)
  1. CLOZARIL [Suspect]
     Active Substance: CLOZAPINE
     Route: 048
     Dates: start: 20170302

REACTIONS (3)
  - White blood cell count increased [Recovering/Resolving]
  - Neutrophilia [Recovering/Resolving]
  - Empyema [Recovering/Resolving]

NARRATIVE: CASE EVENT DATE: 20180214
